FAERS Safety Report 4811515-6 (Version None)
Quarter: 2005Q4

REPORT INFORMATION
  Report Type: 
  Country: None (occurrence: None)
  Receive Date: 20051027
  Receipt Date: 20051017
  Transmission Date: 20060501
  Serious: Yes (Hospitalization, Other)
  Sender: FDA-Public Use
  Company Number: GB-ABBOTT-05P-167-0314480-00

PATIENT
  Age: 10 Year
  Sex: Female

DRUGS (1)
  1. ERYTHROCIN [Suspect]
     Indication: RESPIRATORY TRACT INFECTION

REACTIONS (11)
  - ABDOMINAL PAIN [None]
  - ANOREXIA [None]
  - ARTHRALGIA [None]
  - CHROMATURIA [None]
  - FAECES PALE [None]
  - FATIGUE [None]
  - HEPATITIS CHOLESTATIC [None]
  - HEPATOMEGALY [None]
  - LIVER FUNCTION TEST ABNORMAL [None]
  - NAUSEA [None]
  - PRURITUS [None]
